FAERS Safety Report 10720741 (Version 4)
Quarter: 2015Q1

REPORT INFORMATION
  Report Type: Report from Study
  Country: CZ (occurrence: CZ)
  Receive Date: 20150119
  Receipt Date: 20150130
  Transmission Date: 20150721
  Serious: Yes (Life-Threatening, Hospitalization, Other)
  Sender: FDA-Public Use
  Company Number: PHHY2015CZ000618

PATIENT
  Age: 75 Year
  Sex: Female
  Weight: 55 kg

DRUGS (4)
  1. AFINITOR [Suspect]
     Active Substance: EVEROLIMUS
     Indication: BREAST CANCER
     Dosage: 10 MG, UNK
     Route: 048
     Dates: start: 20141112, end: 20141212
  2. ESCEPRAN [Concomitant]
     Indication: BREAST CANCER
     Route: 048
     Dates: start: 20141112
  3. AFINITOR [Suspect]
     Active Substance: EVEROLIMUS
     Dosage: 5 MG, UNK
     Route: 048
     Dates: start: 20141212, end: 20141229
  4. PARALEN [Concomitant]
     Active Substance: ACETAMINOPHEN
     Indication: PRODUCT USED FOR UNKNOWN INDICATION
     Route: 065

REACTIONS (5)
  - Cheilitis [Unknown]
  - Feeding disorder [Unknown]
  - Mucosal inflammation [Unknown]
  - Aphthous stomatitis [Not Recovered/Not Resolved]
  - Stomatitis [Unknown]

NARRATIVE: CASE EVENT DATE: 20141201
